FAERS Safety Report 8674474 (Version 3)
Quarter: 2013Q2

REPORT INFORMATION
  Report Type: Spontaneous
  Country: US (occurrence: US)
  Receive Date: 20120720
  Receipt Date: 20130506
  Transmission Date: 20140414
  Serious: No
  Sender: FDA-Public Use
  Company Number: US-PFIZER INC-2012172747

PATIENT
  Sex: Female

DRUGS (2)
  1. EFFEXOR XR [Suspect]
     Dosage: UNK
  2. EFFEXOR XR [Suspect]
     Dosage: 75 MG, UNK

REACTIONS (3)
  - Incorrect dose administered [Unknown]
  - Anxiety [Unknown]
  - Crying [Unknown]
